FAERS Safety Report 8409660-1 (Version None)
Quarter: 2012Q2

REPORT INFORMATION
  Report Type: 
  Country: None (occurrence: None)
  Receive Date: 20120323
  Receipt Date: 20110223
  Transmission Date: 20120825
  Serious: Yes (Disabling, Other)
  Sender: FDA-Public Use
  Company Number: 163-21880-11020875

PATIENT
  Age: 76 Year
  Sex: Female
  Weight: 64 kg

DRUGS (9)
  1. RENVELA (SEVELAMER CARBONATE)(UNKNOWN) [Concomitant]
  2. ADVAIR (SERETIDE MITE)(UNKNOWN) [Concomitant]
  3. ZOCOR (SIMVASTATIN)(UNKNOWN) [Concomitant]
  4. REVLIMID [Suspect]
     Indication: MULTIPLE MYELOMA
     Dosage: 5 MG, 1 IN 1 D, PO  , 5 MG, DAILY FOR 21 DAYS OF 28 DAY CYCLE, PO
     Route: 048
     Dates: start: 20110105, end: 20110111
  5. REVLIMID [Suspect]
     Indication: AMYLOIDOSIS
     Dosage: 5 MG, 1 IN 1 D, PO  , 5 MG, DAILY FOR 21 DAYS OF 28 DAY CYCLE, PO
     Route: 048
     Dates: start: 20110105, end: 20110111
  6. REVLIMID [Suspect]
     Indication: MULTIPLE MYELOMA
     Dosage: 5 MG, 1 IN 1 D, PO  , 5 MG, DAILY FOR 21 DAYS OF 28 DAY CYCLE, PO
     Route: 048
     Dates: start: 20100305, end: 20100806
  7. REVLIMID [Suspect]
     Indication: AMYLOIDOSIS
     Dosage: 5 MG, 1 IN 1 D, PO  , 5 MG, DAILY FOR 21 DAYS OF 28 DAY CYCLE, PO
     Route: 048
     Dates: start: 20100305, end: 20100806
  8. SPIRIVA (TIOTROPIUM BROMIDE)(UNKNOWN) [Concomitant]
  9. AMBIEN [Concomitant]

REACTIONS (1)
  - CLOSTRIDIUM DIFFICILE COLITIS [None]
